FAERS Safety Report 15735107 (Version 1)
Quarter: 2018Q4

REPORT INFORMATION
  Report Type: Report from Study
  Country: US (occurrence: US)
  Receive Date: 20181218
  Receipt Date: 20181218
  Transmission Date: 20190205
  Serious: Yes (Hospitalization, Other)
  Sender: FDA-Public Use
  Company Number: US-AEGERION PHARMACEUTICAL, INC-AEGR003850

PATIENT
  Age: 46 Year
  Sex: Female
  Weight: 53.97 kg

DRUGS (13)
  1. PRAVACHOL [Concomitant]
     Active Substance: PRAVASTATIN SODIUM
     Indication: HYPERCHOLESTEROLAEMIA
     Dosage: 10 MG, UNK
     Route: 048
     Dates: end: 20170228
  2. TOPAMAX [Concomitant]
     Active Substance: TOPIRAMATE
     Indication: MIGRAINE
     Dosage: 50 MG, OD
     Route: 048
     Dates: start: 20161202
  3. METRELEPTIN [Suspect]
     Active Substance: METRELEPTIN
     Indication: LIPODYSTROPHY ACQUIRED
     Dosage: 5 MG, QD
     Route: 058
     Dates: start: 20160202
  4. ONGLYZA [Concomitant]
     Active Substance: SAXAGLIPTIN HYDROCHLORIDE
     Indication: TYPE 2 DIABETES MELLITUS
     Dosage: 5 MG, OD
     Route: 048
     Dates: start: 20151229
  5. NOLVADEX                           /00388701/ [Concomitant]
     Active Substance: TAMOXIFEN CITRATE
     Indication: BREAST CANCER METASTATIC
     Dosage: 20 MG, OD
     Route: 048
  6. LANTUS [Concomitant]
     Active Substance: INSULIN GLARGINE
     Indication: DIABETES MELLITUS
     Dosage: 15 IU, OD
     Route: 058
     Dates: start: 20170113
  7. DIPHENOXYLATE HYDROCHLORIDE AND ATROPINE SULF [Concomitant]
     Indication: DIARRHOEA
     Dosage: 1 TABLET, PRN
     Route: 048
     Dates: start: 20161214
  8. JARDIANCE [Concomitant]
     Active Substance: EMPAGLIFLOZIN
     Indication: DIABETES MELLITUS
     Dosage: 25 MG, OD
     Route: 048
     Dates: start: 20161221
  9. GLUCOPHAGE [Concomitant]
     Active Substance: METFORMIN HYDROCHLORIDE
     Indication: DIABETES MELLITUS
     Dosage: 1000 MG, BID
     Route: 048
     Dates: start: 20150414
  10. METRELEPTIN [Suspect]
     Active Substance: METRELEPTIN
     Indication: ACQUIRED LIPOATROPHIC DIABETES
  11. NORVASC [Concomitant]
     Active Substance: AMLODIPINE BESYLATE
     Indication: HYPERTENSION
     Dosage: 5 MG, OD
     Route: 048
     Dates: start: 20161104
  12. COZAAR [Concomitant]
     Active Substance: LOSARTAN POTASSIUM
     Indication: HYPERTENSION
     Dosage: UNK
     Dates: start: 20161209
  13. DOXYCYCLINE. [Concomitant]
     Active Substance: DOXYCYCLINE
     Indication: ACUTE SINUSITIS
     Dosage: 100 MG, BID
     Route: 048
     Dates: start: 20170110

REACTIONS (1)
  - Device related infection [Recovered/Resolved with Sequelae]

NARRATIVE: CASE EVENT DATE: 20180224
